FAERS Safety Report 8809763 (Version 1)
Quarter: 2012Q4

REPORT INFORMATION
  Report Type: Report from Study
  Country: US (occurrence: US)
  Receive Date: 20120926
  Receipt Date: 20120926
  Transmission Date: 20130627
  Serious: Yes (Hospitalization)
  Sender: FDA-Public Use
  Company Number: US-ABBOTT-12P-163-0980526-00

PATIENT
  Age: 68 None
  Sex: Male
  Weight: 98.52 kg

DRUGS (10)
  1. HUMIRA [Suspect]
     Indication: PSORIATIC ARTHROPATHY
     Route: 058
     Dates: start: 201206, end: 201208
  2. HUMIRA [Suspect]
     Route: 058
     Dates: start: 201209
  3. METFORMIN [Concomitant]
     Indication: DIABETES MELLITUS
     Dosage: 500mg daily
  4. LISINOPRIL [Concomitant]
     Indication: BLOOD PRESSURE
     Dosage: 30mg daily
  5. ZETIA [Concomitant]
     Indication: PRODUCT USED FOR UNKNOWN INDICATION
     Dosage: 10mg daily
  6. GLIMEPIRIDE [Concomitant]
     Indication: PRODUCT USED FOR UNKNOWN INDICATION
  7. CRESTOR [Concomitant]
     Indication: PRODUCT USED FOR UNKNOWN INDICATION
  8. RANITIDINE [Concomitant]
     Indication: PRODUCT USED FOR UNKNOWN INDICATION
     Dosage: 300mg daily
  9. SPIRIVA [Concomitant]
     Indication: CHRONIC OBSTRUCTIVE PULMONARY DISEASE
  10. UNKNOWN CREAMS [Concomitant]
     Indication: PSORIASIS

REACTIONS (6)
  - Coronary artery disease [Unknown]
  - Phlebitis infective [Recovered/Resolved]
  - Arthritis [Not Recovered/Not Resolved]
  - Psoriasis [Not Recovered/Not Resolved]
  - Infusion site extravasation [Unknown]
  - Coronary artery occlusion [Unknown]
